FAERS Safety Report 21065011 (Version 1)
Quarter: 2022Q3

REPORT INFORMATION
  Report Type: Spontaneous
  Country: CN (occurrence: CN)
  Receive Date: 20220711
  Receipt Date: 20220711
  Transmission Date: 20221027
  Serious: Yes (Hospitalization, Other)
  Sender: FDA-Public Use
  Company Number: CN-GLAXOSMITHKLINE-CN2022APC101577

PATIENT

DRUGS (2)
  1. SERETIDE [Suspect]
     Active Substance: FLUTICASONE PROPIONATE\SALMETEROL XINAFOATE
     Indication: Asthma
     Dosage: 1 PUFF(S), BID 50/250UG 60 INHALATIONS
     Route: 055
     Dates: start: 1999
  2. SERETIDE [Suspect]
     Active Substance: FLUTICASONE PROPIONATE\SALMETEROL XINAFOATE
     Dosage: 1 PUFF(S), QD 50/250UG 60 INHALATIONS
     Route: 055

REACTIONS (8)
  - Atrial fibrillation [Unknown]
  - High frequency ablation [Unknown]
  - Thyroid disorder [Unknown]
  - Discomfort [Unknown]
  - Palpitations [Unknown]
  - Asthenia [Unknown]
  - Antibody test abnormal [Unknown]
  - Incorrect dose administered [Unknown]

NARRATIVE: CASE EVENT DATE: 20140101
